FAERS Safety Report 9496193 (Version 4)
Quarter: 2014Q2

REPORT INFORMATION
  Report Type: Report from Study
  Country: US (occurrence: US)
  Receive Date: 20130904
  Receipt Date: 20140602
  Transmission Date: 20141212
  Serious: Yes (Hospitalization)
  Sender: FDA-Public Use
  Company Number: US-BRISTOL-MYERS SQUIBB COMPANY-19238559

PATIENT
  Age: 37 Year
  Sex: Female
  Weight: 58 kg

DRUGS (35)
  1. CARBOPLATIN [Suspect]
     Indication: BREAST CANCER
     Dosage: AUC 6 DAY 3 OF 21-DAY CYCLE
     Route: 042
     Dates: start: 20130425
  2. PACLITAXEL [Suspect]
     Indication: BREAST CANCER
     Dosage: DAY 3 OF 21-DAY CYCLE
     Route: 042
     Dates: start: 20130425
  3. ATORVASTATIN [Concomitant]
     Indication: HYPERCHOLESTEROLAEMIA
     Dates: start: 201210
  4. VITAMIN D2 [Concomitant]
     Indication: VITAMIN SUPPLEMENTATION
     Dates: start: 201106
  5. LORAZEPAM [Concomitant]
     Indication: ANXIETY
     Dosage: 0.5 MG,ASN (JUN2011-14JUN2013),1MG(24-25APR),1MG ONCE(24-25MAY),1MG TID AS NEEDED (JUN2013-ONG)
     Dates: start: 201106
  6. LORAZEPAM [Concomitant]
     Indication: VOMITING
     Dosage: 0.5 MG,ASN (JUN2011-14JUN2013),1MG(24-25APR),1MG ONCE(24-25MAY),1MG TID AS NEEDED (JUN2013-ONG)
     Dates: start: 201106
  7. LORAZEPAM [Concomitant]
     Indication: NAUSEA
     Dosage: 0.5 MG,ASN (JUN2011-14JUN2013),1MG(24-25APR),1MG ONCE(24-25MAY),1MG TID AS NEEDED (JUN2013-ONG)
     Dates: start: 201106
  8. RISPERIDONE [Concomitant]
     Indication: DEPRESSION
     Dates: start: 201105
  9. SENOKOT [Concomitant]
     Indication: CONSTIPATION
     Dosage: 2TABS
     Dates: start: 201108, end: 20130611
  10. VENLAFAXINE HCL [Concomitant]
     Indication: DEPRESSION
     Dates: start: 201105
  11. DEXAMETHASONE [Concomitant]
     Indication: PREMEDICATION
     Dosage: 24APR13-UNK?25APR13-UNK?26APR13-UNK
     Dates: start: 20130424
  12. DEXAMETHASONE [Concomitant]
     Indication: PROPHYLAXIS
     Dosage: 24APR13-UNK?25APR13-UNK?26APR13-UNK
     Dates: start: 20130424
  13. DEXAMETHASONE [Concomitant]
     Indication: DEHYDRATION
     Dosage: 24APR13-UNK?25APR13-UNK?26APR13-UNK
     Dates: start: 20130424
  14. DEXAMETHASONE [Concomitant]
     Indication: NAUSEA
     Dosage: 24APR13-UNK?25APR13-UNK?26APR13-UNK
     Dates: start: 20130424
  15. ONDANSETRON [Concomitant]
     Indication: PREMEDICATION
     Dosage: 16MG ONCE IN 3WKS 25APR13-UNK?16MG AS REQ 26APR13-UNK
     Dates: start: 20130425
  16. ONDANSETRON [Concomitant]
     Indication: NAUSEA
     Dosage: 16MG ONCE IN 3WKS 25APR13-UNK?16MG AS REQ 26APR13-UNK
     Dates: start: 20130425
  17. ONDANSETRON [Concomitant]
     Indication: CHEMOTHERAPY
     Dosage: 16MG ONCE IN 3WKS 25APR13-UNK?16MG AS REQ 26APR13-UNK
     Dates: start: 20130425
  18. DIPHENHYDRAMINE [Concomitant]
     Indication: PREMEDICATION
     Dates: start: 20130425
  19. DIPHENHYDRAMINE [Concomitant]
     Indication: CHEMOTHERAPY
     Dates: start: 20130425
  20. FOSAPREPITANT [Concomitant]
     Indication: PREMEDICATION
     Dates: start: 20130425
  21. FOSAPREPITANT [Concomitant]
     Indication: CHEMOTHERAPY
     Dates: start: 20130425
  22. RANITIDINE [Concomitant]
     Indication: PREMEDICATION
     Dates: start: 20130425
  23. PEGFILGRASTIM [Concomitant]
     Indication: PROPHYLAXIS
     Dates: start: 20130426
  24. NORMAL SALINE [Concomitant]
     Indication: PROPHYLAXIS
     Dates: start: 20130425
  25. PROCHLORPERAZINE [Concomitant]
     Indication: NAUSEA
     Dates: start: 20130501
  26. PERCOCET [Concomitant]
     Indication: NEURALGIA
     Dates: start: 20130509
  27. PERCOCET [Concomitant]
     Indication: TUMOUR PAIN
     Dates: start: 20130509
  28. GABAPENTIN [Concomitant]
     Indication: NEUROPATHY PERIPHERAL
     Dates: start: 20130509
  29. HYDROMORPHONE [Concomitant]
     Indication: ABDOMINAL PAIN
     Dosage: 1MG 24MY13-24MY13?0.5-1MG 15JUN13-ONG
     Dates: start: 20130524
  30. HYDROMORPHONE [Concomitant]
     Indication: PAIN
     Dosage: 1MG 24MY13-24MY13?0.5-1MG 15JUN13-ONG
     Dates: start: 20130524
  31. PEPCID [Concomitant]
     Indication: ABDOMINAL PAIN UPPER
     Dates: start: 20130604
  32. OXYCONTIN [Concomitant]
     Indication: BACK PAIN
     Dosage: 40MG BID 14JUN13-ONG
     Dates: start: 20130514
  33. OXYCONTIN [Concomitant]
     Indication: ABDOMINAL PAIN UPPER
     Dosage: 40MG BID 14JUN13-ONG
     Dates: start: 20130514
  34. OXYCONTIN [Concomitant]
     Indication: HEADACHE
     Dosage: 40MG BID 14JUN13-ONG
     Dates: start: 20130514
  35. DOCUSATE SODIUM [Concomitant]
     Indication: CONSTIPATION
     Dates: start: 20130611

REACTIONS (3)
  - Abdominal pain [Recovered/Resolved]
  - Vomiting [Recovered/Resolved]
  - Nausea [Recovered/Resolved]
